FAERS Safety Report 7264070-8 (Version None)
Quarter: 2011Q1

REPORT INFORMATION
  Report Type: 
  Country: None (occurrence: None)
  Receive Date: 20110130
  Receipt Date: 20101220
  Transmission Date: 20110831
  Serious: No
  Sender: FDA-Public Use
  Company Number: US-ABBOTT-10P-163-0692619-00

PATIENT
  Sex: Female
  Weight: 66.738 kg

DRUGS (5)
  1. CELEXA [Concomitant]
     Indication: DEPRESSION
  2. BUSPURONE [Concomitant]
     Indication: ANXIETY
  3. ESTROGENIC SUBSTANCE [Concomitant]
     Indication: VULVOVAGINAL DRYNESS
     Route: 067
  4. HUMIRA [Suspect]
     Indication: PSORIASIS
     Dosage: 2 INITIAL
     Dates: start: 20101101
  5. ESTROGENIC SUBSTANCE [Concomitant]
     Indication: VAGINAL DISCHARGE

REACTIONS (5)
  - FLUID RETENTION [None]
  - VAGINAL DISCHARGE [None]
  - VULVOVAGINAL DRYNESS [None]
  - OEDEMA PERIPHERAL [None]
  - JOINT SWELLING [None]
